FAERS Safety Report 16111263 (Version 3)
Quarter: 2019Q2

REPORT INFORMATION
  Report Type: Report from Study
  Country: NL (occurrence: NL)
  Receive Date: 20190325
  Receipt Date: 20190409
  Transmission Date: 20190711
  Serious: Yes (Hospitalization)
  Sender: FDA-Public Use
  Company Number: NL-GLAXOSMITHKLINE-NL2019049349

PATIENT
  Age: 54 Year
  Sex: Female

DRUGS (9)
  1. BELIMUMAB [Suspect]
     Active Substance: BELIMUMAB
     Indication: LUPUS NEPHRITIS
     Dosage: 10 MG/KG, CYC
     Route: 042
     Dates: start: 20170306
  2. NADROPARINE [Concomitant]
     Active Substance: NADROPARIN
     Indication: COAGULOPATHY
     Dosage: 2850 IU, 1D
     Route: 058
     Dates: start: 20190318, end: 20190318
  3. HYDROCORTISONE. [Concomitant]
     Active Substance: HYDROCORTISONE
     Indication: PROPHYLAXIS
     Dosage: 50 MG, BID
     Route: 042
     Dates: start: 20190318, end: 20190318
  4. DOLOPHINE [Concomitant]
     Active Substance: METHADONE HYDROCHLORIDE
     Indication: PAIN
     Dosage: 5 MG, CO
     Route: 042
     Dates: start: 20190318, end: 20190318
  5. PARACETAMOL [Concomitant]
     Active Substance: ACETAMINOPHEN
     Indication: PAIN
     Dosage: 1000 MG, QID
     Route: 048
     Dates: start: 20190318, end: 20190320
  6. OXYCODON [Concomitant]
     Active Substance: OXYCODONE
     Indication: PAIN
     Dosage: 5 MG, PRN
     Route: 048
     Dates: start: 20190318, end: 20190319
  7. ONDANSETRON [Concomitant]
     Active Substance: ONDANSETRON
     Indication: NAUSEA
     Dosage: 2 MG, CO
     Route: 042
     Dates: start: 20190318, end: 20190318
  8. ONDANSETRON [Concomitant]
     Active Substance: ONDANSETRON
     Dosage: 4 MG, CO
     Route: 042
     Dates: start: 20190319, end: 20190319
  9. MORPHINE [Concomitant]
     Active Substance: MORPHINE
     Indication: PAIN
     Dosage: 5 MG, CO
     Route: 042
     Dates: start: 20190318, end: 20190318

REACTIONS (2)
  - Post procedural haematoma [Recovered/Resolved]
  - Hyperparathyroidism [Recovered/Resolved]

NARRATIVE: CASE EVENT DATE: 20180910
